FAERS Safety Report 7478332-2 (Version None)
Quarter: 2011Q2

REPORT INFORMATION
  Report Type: 
  Country: None (occurrence: None)
  Receive Date: 20110513
  Receipt Date: 20110504
  Transmission Date: 20111010
  Serious: Yes (Hospitalization, Other)
  Sender: FDA-Public Use
  Company Number: FR-JNJFOC-20110503802

PATIENT
  Sex: Male
  Weight: 56 kg

DRUGS (5)
  1. ABIRATERONE [Suspect]
     Indication: PROSTATE CANCER METASTATIC
     Route: 048
  2. COVERAM [Concomitant]
     Indication: HYPERTENSION
     Route: 048
  3. RADIOTHERAPY [Suspect]
     Indication: PROSTATE CANCER METASTATIC
     Route: 065
  4. PREDNISOLONE [Suspect]
     Indication: PROSTATE CANCER
     Route: 065
  5. ABIRATERONE [Suspect]
     Route: 048

REACTIONS (3)
  - WEIGHT DECREASED [None]
  - HYPOKALAEMIA [None]
  - OESOPHAGITIS [None]
